FAERS Safety Report 9812263 (Version 2)
Quarter: 2014Q1

REPORT INFORMATION
  Report Type: Spontaneous
  Country: FR (occurrence: FR)
  Receive Date: 20140113
  Receipt Date: 20140113
  Transmission Date: 20141002
  Serious: Yes (Hospitalization, Other)
  Sender: FDA-Public Use
  Company Number: FR-AMGEN-FRASP2013091773

PATIENT
  Age: 53 Year
  Sex: Female

DRUGS (7)
  1. ENBREL [Suspect]
     Indication: PSORIASIS
     Dosage: 50 MG, WEEKLY
     Route: 058
     Dates: start: 200803, end: 201309
  2. KETOPROFEN [Concomitant]
     Dosage: LP 100 MG
     Route: 048
     Dates: start: 201308, end: 201309
  3. OMEPRAZOLE MYLAN [Concomitant]
     Dosage: UNK
     Route: 048
     Dates: start: 201308, end: 201309
  4. DAFALGAN CODEINE [Concomitant]
     Dosage: 1 DF, 3X/DAY
     Route: 048
     Dates: start: 201308, end: 201309
  5. SPASFON LYOC [Concomitant]
     Dosage: UNK
     Route: 048
     Dates: start: 201308, end: 201309
  6. FENTANYL SANDOZ [Concomitant]
     Dosage: 2 DF, 1X/DAY
     Route: 062
     Dates: start: 201309
  7. MOVICOL                            /01749801/ [Concomitant]
     Dosage: 1 DF, 1X/DAY
     Route: 048
     Dates: start: 201309

REACTIONS (3)
  - Plasma cell myeloma [Not Recovered/Not Resolved]
  - Iridocyclitis [Unknown]
  - Renal colic [Unknown]
